FAERS Safety Report 22050389 (Version 2)
Quarter: 2023Q1

REPORT INFORMATION
  Report Type: Spontaneous
  Country: GB (occurrence: GB)
  Receive Date: 20230301
  Receipt Date: 20230314
  Transmission Date: 20230417
  Serious: Yes (Hospitalization, Other)
  Sender: FDA-Public Use
  Company Number: GB-TAKEDA-2023TUS020428

PATIENT
  Sex: Female

DRUGS (1)
  1. BRIGATINIB [Suspect]
     Active Substance: BRIGATINIB
     Indication: Lung adenocarcinoma
     Dosage: UNK
     Route: 065
     Dates: start: 20190731

REACTIONS (5)
  - Renal impairment [Unknown]
  - Dehydration [Unknown]
  - Acute kidney injury [Unknown]
  - Lung adenocarcinoma [Unknown]
  - Diarrhoea [Unknown]
